FAERS Safety Report 4823915-9 (Version None)
Quarter: 2005Q4

REPORT INFORMATION
  Report Type: 
  Country: None (occurrence: None)
  Receive Date: 20051109
  Receipt Date: 20051102
  Transmission Date: 20060501
  Serious: Yes (Other)
  Sender: FDA-Public Use
  Company Number: JP-AVENTIS-200513284JP

PATIENT
  Age: 21 Year
  Sex: Female

DRUGS (1)
  1. LASIX [Suspect]
     Indication: CARDIAC FAILURE

REACTIONS (2)
  - BONE DENSITY DECREASED [None]
  - HYPERPARATHYROIDISM [None]
